FAERS Safety Report 9412091 (Version 1)
Quarter: 2013Q2

REPORT INFORMATION
  Report Type: Spontaneous
  Country: US (occurrence: US)
  Receive Date: 20130401
  Receipt Date: 20130401
  Transmission Date: 20140414
  Serious: Yes (Other)
  Sender: FDA-Public Use
  Company Number: 20110718

PATIENT
  Age: 41 Year
  Sex: Female

DRUGS (2)
  1. DEXAMETHASONE SODIUM PHOSPHATE INJECTION, USP (4901-25) 4 MG/ML [Suspect]
     Indication: HYPOAESTHESIA
     Dates: start: 20130614
  2. MARCAINE [Suspect]
     Indication: HYPOAESTHESIA
     Dates: start: 20130614

REACTIONS (8)
  - Pain [None]
  - Arthralgia [None]
  - Oropharyngeal pain [None]
  - Cough [None]
  - Pain in extremity [None]
  - Gait disturbance [None]
  - Vision blurred [None]
  - Sleep disorder [None]
